FAERS Safety Report 9444877 (Version 1)
Quarter: 2013Q3

REPORT INFORMATION
  Report Type: Spontaneous
  Country: US (occurrence: None)
  Receive Date: 20130805
  Receipt Date: 20130805
  Transmission Date: 20140515
  Serious: Yes (Hospitalization, Other)
  Sender: FDA-Public Use
  Company Number: 2013AP007020

PATIENT
  Age: 25 Year
  Sex: Female

DRUGS (6)
  1. ESCITALOPRAM [Suspect]
  2. KETAMINE [Suspect]
     Route: 041
  3. CLOMIPRAMINE [Suspect]
  4. SELECTIVE SEROTONIN [Concomitant]
  5. REUPTAKE INHIBITORS [Concomitant]
  6. ANTIPSYCHOTICS [Concomitant]

REACTIONS (10)
  - Suicidal ideation [None]
  - Dysphoria [None]
  - Anxiety [None]
  - Drug interaction [None]
  - Derealisation [None]
  - Tearfulness [None]
  - Attention-seeking behaviour [None]
  - Illusion [None]
  - Parosmia [None]
  - Dysgeusia [None]
